FAERS Safety Report 4351687-3 (Version None)
Quarter: 2004Q2

REPORT INFORMATION
  Report Type: 
  Country: None (occurrence: None)
  Receive Date: 20040429
  Receipt Date: 20040222
  Transmission Date: 20050107
  Serious: No
  Sender: FDA-Public Use
  Company Number: 2004-114225-NL

PATIENT
  Age: 33 Year
  Sex: Female

DRUGS (3)
  1. NUVARING [Suspect]
     Indication: CONTRACEPTION
     Dosage: DF DAILY, VAGINAL
     Route: 067
  2. MULTIVITAMIN [Concomitant]
  3. FIBER SUPPLEMENT [Concomitant]

REACTIONS (1)
  - METRORRHAGIA [None]
